FAERS Safety Report 11178931 (Version 1)
Quarter: 2015Q2

REPORT INFORMATION
  Report Type: Spontaneous
  Country: US (occurrence: None)
  Receive Date: 20150603
  Receipt Date: 20150603
  Transmission Date: 20150821
  Serious: Yes (Death)
  Sender: FDA-Public Use
  Company Number: 1053087-2015-00003

PATIENT
  Age: 21 Year
  Sex: Male
  Weight: 65.77 kg

DRUGS (1)
  1. SODIUM CITRATE. [Suspect]
     Active Substance: SODIUM CITRATE
     Indication: APHERESIS
     Dosage: BAG/PROCEDURE/IV
     Route: 042
     Dates: start: 20150510

REACTIONS (1)
  - Death [None]

NARRATIVE: CASE EVENT DATE: 20150510
